FAERS Safety Report 9414221 (Version 1)
Quarter: 2013Q3

REPORT INFORMATION
  Report Type: Spontaneous
  Country: US (occurrence: US)
  Receive Date: 20130723
  Receipt Date: 20130723
  Transmission Date: 20140515
  Serious: Yes (Death)
  Sender: FDA-Public Use
  Company Number: US-SANOFI-AVENTIS-2013SA073377

PATIENT
  Sex: Female

DRUGS (2)
  1. LANTUS [Suspect]
     Indication: TYPE 1 DIABETES MELLITUS
     Dosage: PRODUCT STARTED LESS THAN 6 MONTHS
     Route: 065
  2. ORAL ANTIDIABETICS [Concomitant]
     Dosage: TAKEN FROM LESS THAN 3 YEARS

REACTIONS (2)
  - Death [Fatal]
  - Glycosylated haemoglobin increased [Unknown]
